FAERS Safety Report 10616341 (Version 1)
Quarter: 2014Q4

REPORT INFORMATION
  Report Type: Spontaneous
  Country: GB (occurrence: GB)
  Receive Date: 20141201
  Receipt Date: 20141201
  Transmission Date: 20150529
  Serious: Yes (Other)
  Sender: FDA-Public Use
  Company Number: GB-PFIZER INC-2014324610

PATIENT
  Age: 59 Year
  Sex: Male

DRUGS (4)
  1. SUTENT [Suspect]
     Active Substance: SUNITINIB MALATE
     Indication: METASTATIC RENAL CELL CARCINOMA
     Dosage: REDUCED:37.5MG
  2. HYDREA [Suspect]
     Active Substance: HYDROXYUREA
     Indication: METASTATIC RENAL CELL CARCINOMA
     Dosage: 1G DAILY FOR 5 DAYS AND 1.5 G FOR THE REST OF DAYS IN WEEK. REDUCED: 1G DAILY
  3. HYDREA [Suspect]
     Active Substance: HYDROXYUREA
     Indication: POLYCYTHAEMIA VERA
     Dosage: 1 G, DAILY
  4. SUTENT [Suspect]
     Active Substance: SUNITINIB MALATE
     Dosage: 37.5 MG, UNK

REACTIONS (4)
  - Lethargy [Unknown]
  - Disease progression [Unknown]
  - Stomatitis [Recovered/Resolved]
  - Metastatic renal cell carcinoma [Unknown]
